FAERS Safety Report 8124229-4 (Version None)
Quarter: 2012Q1

REPORT INFORMATION
  Report Type: 
  Country: None (occurrence: None)
  Receive Date: 20120209
  Receipt Date: 20120130
  Transmission Date: 20120608
  Serious: Yes (Hospitalization, Other)
  Sender: FDA-Public Use
  Company Number: US-BAYER-2011-098115

PATIENT
  Age: 25 Year
  Sex: Female
  Weight: 78 kg

DRUGS (8)
  1. DROSPIRENONE AND ETHINYL ESTRADIOL [Suspect]
     Indication: HYPERANDROGENISM
  2. METFORMIN HCL [Concomitant]
     Dosage: 1000 MG, UNK
     Route: 048
     Dates: start: 20060601
  3. DROSPIRENONE AND ETHINYL ESTRADIOL [Suspect]
     Indication: MENSTRUATION IRREGULAR
     Dosage: UNK
     Dates: start: 20080501, end: 20100901
  4. YASMIN [Suspect]
     Indication: HYPERANDROGENISM
  5. YASMIN [Suspect]
     Indication: MENSTRUATION IRREGULAR
     Dosage: UNK
     Dates: start: 20080501, end: 20100901
  6. ZANTAC [Concomitant]
     Dosage: 150 MG, BID
     Route: 048
     Dates: start: 20090821
  7. CYANOCOBALAMIN [Concomitant]
     Dosage: 1000 MG, UNK
     Route: 048
     Dates: start: 20091030
  8. DOXYCYCLINE [Concomitant]
     Dosage: UNK
     Dates: start: 20091221

REACTIONS (11)
  - HEPATIC NEOPLASM [None]
  - VITAMIN B12 DEFICIENCY [None]
  - FAT INTOLERANCE [None]
  - DEPRESSION [None]
  - WEIGHT DECREASED [None]
  - CHOLELITHIASIS [None]
  - ABDOMINAL PAIN [None]
  - HAEMANGIOMA OF LIVER [None]
  - CHOLECYSTITIS CHRONIC [None]
  - GALLBLADDER POLYP [None]
  - GASTRITIS [None]
